FAERS Safety Report 10395816 (Version 1)
Quarter: 2014Q3

REPORT INFORMATION
  Report Type: Spontaneous
  Country: AT (occurrence: None)
  Receive Date: 20140818
  Receipt Date: 20140818
  Transmission Date: 20150326
  Serious: Yes (Hospitalization)
  Sender: FDA-Public Use
  Company Number: SYM-2014-24171

PATIENT
  Sex: Male

DRUGS (3)
  1. OXALIPLATIN (OXALIPLATIN) [Suspect]
     Active Substance: OXALIPLATIN
     Indication: PROSTATE CANCER METASTATIC
     Dates: start: 200712, end: 200801
  2. DOCETAXEL (DOCETAXEL) [Suspect]
     Active Substance: DOCETAXEL
     Indication: PROSTATE CANCER METASTATIC
     Dates: start: 201003, end: 201006
  3. FLUOROURACIL (FLUOROURACIL) [Suspect]
     Active Substance: FLUOROURACIL
     Indication: PROSTATE CANCER METASTATIC
     Dates: start: 200712, end: 200801

REACTIONS (3)
  - Off label use [None]
  - Disease progression [None]
  - Prostate cancer [None]

NARRATIVE: CASE EVENT DATE: 200801
